FAERS Safety Report 9168631 (Version 1)
Quarter: 2013Q1

REPORT INFORMATION
  Report Type: Spontaneous
  Country: US (occurrence: US)
  Receive Date: 20130318
  Receipt Date: 20130318
  Transmission Date: 20140127
  Serious: No
  Sender: FDA-Public Use
  Company Number: US-BAYER-2013-032083

PATIENT
  Age: 30 Month
  Sex: Male
  Weight: 13.15 kg

DRUGS (1)
  1. ALEVE CAPLET/TABLET,MIDOL EXTENDED RELIEF CAPLET [Suspect]
     Dosage: UNK,DF, UNK
     Dates: start: 20130311, end: 20130311

REACTIONS (2)
  - Accidental exposure to product by child [None]
  - Unevaluable event [None]
